FAERS Safety Report 10205470 (Version 2)
Quarter: 2014Q3

REPORT INFORMATION
  Report Type: Spontaneous
  Country: DE (occurrence: DE)
  Receive Date: 20140529
  Receipt Date: 20140709
  Transmission Date: 20150326
  Serious: Yes (Other)
  Sender: FDA-Public Use
  Company Number: DE-SA-2014SA068452

PATIENT
  Age: 60 Year
  Sex: Male

DRUGS (1)
  1. BCG FOR IMMUNOTHERAPY [Suspect]
     Active Substance: BCG VACCINE
     Indication: BLADDER CANCER
     Route: 043

REACTIONS (3)
  - Bovine tuberculosis [Recovered/Resolved]
  - Osteomyelitis [Recovered/Resolved]
  - Spondylitis [Recovered/Resolved]
